FAERS Safety Report 7923605 (Version 3)
Quarter: 2013Q2

REPORT INFORMATION
  Report Type: Spontaneous
  Country: US (occurrence: US)
  Receive Date: 20110429
  Receipt Date: 20130606
  Transmission Date: 20140414
  Serious: Yes (Other)
  Sender: FDA-Public Use
  Company Number: US-ASTRAZENECA-2010SE39391

PATIENT
  Age: 59 Year
  Sex: Female

DRUGS (2)
  1. NEXIUM [Suspect]
     Route: 048
  2. PREVACID [Suspect]
     Route: 065

REACTIONS (11)
  - Lung neoplasm malignant [Unknown]
  - Liver disorder [Unknown]
  - Blood calcium decreased [Unknown]
  - Blood potassium decreased [Unknown]
  - Gout [Unknown]
  - Polyarthritis [Unknown]
  - Arthritis [Unknown]
  - Asthma [Unknown]
  - Pneumonia [Unknown]
  - Diarrhoea [Unknown]
  - Drug dose omission [Unknown]
